FAERS Safety Report 18616203 (Version 1)
Quarter: 2020Q4

REPORT INFORMATION
  Report Type: Spontaneous
  Country: CN (occurrence: CN)
  Receive Date: 20201214
  Receipt Date: 20201214
  Transmission Date: 20210114
  Serious: Yes (Death, Other)
  Sender: FDA-Public Use
  Company Number: CN-ASTELLAS-2020US039632

PATIENT
  Age: 49 Year
  Sex: Male

DRUGS (1)
  1. PROGRAF [Suspect]
     Active Substance: TACROLIMUS
     Indication: PRODUCT USED FOR UNKNOWN INDICATION
     Dosage: 2 MG, TWICE DAILY (2 MG IN MORNING AND 2 MG IN EVENING)
     Route: 065

REACTIONS (5)
  - Seizure [Unknown]
  - General physical condition abnormal [Unknown]
  - Rash [Unknown]
  - Disease progression [Fatal]
  - Muscular weakness [Unknown]
